FAERS Safety Report 10642943 (Version 1)
Quarter: 2014Q4

REPORT INFORMATION
  Report Type: Spontaneous
  Country: US (occurrence: None)
  Receive Date: 20141209
  Receipt Date: 20141209
  Transmission Date: 20150529
  Serious: No
  Sender: FDA-Public Use
  Company Number: None

PATIENT
  Sex: Female

DRUGS (2)
  1. NAPROXEN. [Suspect]
     Active Substance: NAPROXEN
  2. ALLOPURINOL. [Suspect]
     Active Substance: ALLOPURINOL

REACTIONS (3)
  - Wrong drug administered [None]
  - Drug dispensing error [None]
  - Unevaluable event [None]

NARRATIVE: CASE EVENT DATE: 2014
